FAERS Safety Report 7682113-4 (Version None)
Quarter: 2011Q3

REPORT INFORMATION
  Report Type: 
  Country: None (occurrence: None)
  Receive Date: 20110804
  Receipt Date: 20110727
  Transmission Date: 20111222
  Serious: Yes (Other)
  Sender: FDA-Public Use
  Company Number: 2011SP004288

PATIENT
  Age: 57 Year
  Sex: Female
  Weight: 56 kg

DRUGS (6)
  1. PEG-INTRON [Suspect]
     Indication: HEPATITIS C
     Dosage: 80 MCG; QW; SC
     Route: 058
     Dates: start: 20100101, end: 20110618
  2. AMYTRIPTILINE [Concomitant]
  3. RIBAVIRIN [Suspect]
     Indication: HEPATITIS C
     Dosage: QD; PO
     Route: 048
     Dates: end: 20110618
  4. DIAZEPAM [Concomitant]
  5. FOLIC ACID [Concomitant]
  6. PROPRANOLOL [Concomitant]

REACTIONS (16)
  - WHITE BLOOD CELL COUNT DECREASED [None]
  - BACK PAIN [None]
  - DRY SKIN [None]
  - PYREXIA [None]
  - HEADACHE [None]
  - CHEST PAIN [None]
  - ALOPECIA [None]
  - ASTHENIA [None]
  - APPLICATION SITE NODULE [None]
  - HAEMATOMA [None]
  - ABDOMINAL PAIN [None]
  - CHILLS [None]
  - PAIN [None]
  - PAIN IN EXTREMITY [None]
  - BODY TEMPERATURE DECREASED [None]
  - NAIL DISORDER [None]
